FAERS Safety Report 9750788 (Version 3)
Quarter: 2014Q1

REPORT INFORMATION
  Report Type: Report from Study
  Country: GB (occurrence: GB)
  Receive Date: 20131212
  Receipt Date: 20140207
  Transmission Date: 20141002
  Serious: Yes (Hospitalization, Disabling)
  Sender: FDA-Public Use
  Company Number: GB-CELGENEUS-167-21880-13091865

PATIENT
  Age: 71 Year
  Sex: Male
  Weight: 61.7 kg

DRUGS (26)
  1. REVLIMID [Suspect]
     Indication: PLASMA CELL MYELOMA
     Dosage: 10 MILLIGRAM
     Route: 048
     Dates: start: 20120224, end: 20120322
  2. REVLIMID [Suspect]
     Dosage: 5 MILLIGRAM
     Route: 048
     Dates: start: 20130120
  3. REVLIMID [Suspect]
     Dosage: 15 MILLIGRAM
     Route: 048
     Dates: start: 20120120, end: 20120223
  4. REVLIMID [Suspect]
     Dosage: 5 MILLIGRAM
     Route: 048
     Dates: start: 20120323, end: 20120419
  5. REVLIMID [Suspect]
     Dosage: 5 MILLIGRAM
     Route: 048
     Dates: start: 20130906, end: 20130927
  6. DEXAMETHASONE [Suspect]
     Indication: PLASMA CELL MYELOMA
     Dosage: 40 MILLIGRAM
     Route: 048
     Dates: start: 20130120
  7. DEXAMETHASONE [Suspect]
     Route: 065
     Dates: start: 200802, end: 200807
  8. DEXAMETHASONE [Suspect]
     Route: 065
     Dates: start: 200811, end: 200905
  9. ALFACALCIDOL [Concomitant]
     Indication: RENAL DISORDER
     Dosage: .5 MICROGRAM
     Route: 048
     Dates: start: 20130905
  10. ALFACALCIDOL [Concomitant]
     Indication: VITAMIN D
     Route: 065
  11. OMEPRAZOLE [Concomitant]
     Indication: GASTROINTESTINAL DISORDER
     Dosage: 40 MILLIGRAM
     Route: 048
     Dates: start: 20130905
  12. OMEPRAZOLE [Concomitant]
     Route: 048
     Dates: start: 20120224, end: 20120322
  13. OMEPRAZOLE [Concomitant]
     Route: 048
     Dates: start: 20120120, end: 20120223
  14. OMEPRAZOLE [Concomitant]
     Route: 048
     Dates: start: 20120323, end: 20120419
  15. TAMSULOSIN [Concomitant]
     Indication: PROSTATIC DISORDER
     Dosage: 40 MICROGRAM
     Route: 048
     Dates: start: 20130908
  16. TAMSULOSIN [Concomitant]
     Indication: URINARY RETENTION
     Route: 065
  17. SENNA [Concomitant]
     Indication: PRODUCT USED FOR UNKNOWN INDICATION
     Dosage: 1.5 MILLIGRAM
     Route: 048
  18. ASPIRINE [Concomitant]
     Indication: PRODUCT USED FOR UNKNOWN INDICATION
     Route: 048
  19. ALLOPURINOL [Concomitant]
     Indication: PRODUCT USED FOR UNKNOWN INDICATION
     Route: 048
     Dates: start: 20120120, end: 20120223
  20. AMLODIPINE [Concomitant]
     Indication: HYPERTENSION
     Dosage: 5 MILLIGRAM
     Route: 048
     Dates: start: 20131002
  21. RENAL MULTIVITAMINS [Concomitant]
     Indication: VITAMIN SUPPLEMENTATION
     Dosage: 1 TABLET
     Route: 048
     Dates: start: 20130928
  22. METOCLOPRAMIDE [Concomitant]
     Indication: NAUSEA
     Dosage: 10 MILLIGRAM
     Route: 048
     Dates: start: 20130910, end: 20130918
  23. FUROSEMIDE [Concomitant]
     Indication: POLYURIA
     Dosage: 80 MILLIGRAM
     Route: 048
     Dates: start: 20130906
  24. DARBAPOETIN [Concomitant]
     Indication: ANAEMIA
     Dosage: 150 MICROGRAM
     Route: 058
     Dates: start: 20130919
  25. CALCIUM ACETATE [Concomitant]
     Indication: BLOOD PHOSPHORUS ABNORMAL
     Dosage: 3 GRAM
     Route: 048
     Dates: start: 20130905
  26. PRO-CAL SHOT [Concomitant]
     Indication: NUTRITIONAL SUPPLEMENTATION
     Dosage: 120 MILLILITER
     Route: 048
     Dates: start: 20130912

REACTIONS (5)
  - Anaemia [Recovered/Resolved with Sequelae]
  - Anaemia [Recovered/Resolved]
  - Escherichia sepsis [Recovered/Resolved]
  - Herpes zoster [Recovered/Resolved]
  - Renal impairment [Recovered/Resolved]
